FAERS Safety Report 6371621-4 (Version None)
Quarter: 2009Q3

REPORT INFORMATION
  Report Type: 
  Country: None (occurrence: None)
  Receive Date: 20090923
  Receipt Date: 20080514
  Transmission Date: 20100115
  Serious: Yes (Other)
  Sender: FDA-Public Use
  Company Number: US-ASTRAZENECA-2008UW01145

PATIENT
  Age: 615 Month
  Sex: Female
  Weight: 88 kg

DRUGS (13)
  1. SEROQUEL [Suspect]
     Indication: BIPOLAR DISORDER
     Route: 048
     Dates: start: 20000201, end: 20071101
  2. SEROQUEL [Suspect]
     Route: 048
     Dates: start: 20040409
  3. LOVASTATIN [Concomitant]
     Dates: start: 20060117
  4. EFFEXOR XS [Concomitant]
     Dates: start: 20060220
  5. VALPROIC ACID [Concomitant]
     Dates: start: 20060220
  6. LISINOPRIL [Concomitant]
     Dates: start: 20060317
  7. SIMVASTATIN [Concomitant]
     Dates: start: 20080117
  8. DEPAKOTE [Concomitant]
     Dates: start: 20040409
  9. HALDOL [Concomitant]
     Dates: start: 19970611
  10. BENADRYL [Concomitant]
     Dates: start: 20040409
  11. TRAZODONE [Concomitant]
     Dates: start: 20040409
  12. LEVOBUNOLOL HCL [Concomitant]
     Dates: start: 20040409
  13. LUMIGAN [Concomitant]
     Dates: start: 20040409

REACTIONS (2)
  - DIABETES MELLITUS [None]
  - VISION BLURRED [None]
